FAERS Safety Report 5876455-2 (Version None)
Quarter: 2008Q3

REPORT INFORMATION
  Report Type: 
  Country: None (occurrence: None)
  Receive Date: 20080908
  Receipt Date: 20080908
  Transmission Date: 20090109
  Serious: Yes (Other)
  Sender: FDA-Public Use
  Company Number: None

PATIENT
  Age: 53 Year
  Sex: Female
  Weight: 48.9885 kg

DRUGS (2)
  1. AVELOX [Suspect]
     Indication: SINUSITIS
     Dosage: 1 PILL ONCE PO
     Route: 048
     Dates: start: 20080904, end: 20080904
  2. AVELOX [Suspect]
     Dates: start: 20080401, end: 20080406

REACTIONS (6)
  - ARTHRALGIA [None]
  - BONE PAIN [None]
  - BURNING SENSATION [None]
  - CHEST DISCOMFORT [None]
  - PAIN IN EXTREMITY [None]
  - PRURITUS [None]
